FAERS Safety Report 6528685-4 (Version None)
Quarter: 2009Q4

REPORT INFORMATION
  Report Type: 
  Country: None (occurrence: None)
  Receive Date: 20091222
  Receipt Date: 20091209
  Transmission Date: 20100525
  Serious: Yes (Other)
  Sender: FDA-Public Use
  Company Number: 2009SA009142

PATIENT
  Age: 68 Year
  Sex: Male

DRUGS (3)
  1. FLUDARA [Suspect]
     Indication: NON-HODGKIN'S LYMPHOMA
     Dosage: ORAL
     Route: 048
     Dates: start: 20090201
  2. CON MEDS [Concomitant]
  3. PREV MEDS [Concomitant]

REACTIONS (1)
  - OBLITERATIVE BRONCHIOLITIS [None]
